FAERS Safety Report 13717354 (Version 1)
Quarter: 2017Q3

REPORT INFORMATION
  Report Type: Spontaneous
  Country: US (occurrence: US)
  Receive Date: 20170705
  Receipt Date: 20170705
  Transmission Date: 20171127
  Serious: Yes (Death)
  Sender: FDA-Public Use
  Company Number: US-LEXICON PHARMACEUTICALS, INC-17-1606-00463

PATIENT
  Age: 83 Year
  Sex: Male

DRUGS (28)
  1. CYANOCOBALAMIN. [Concomitant]
     Active Substance: CYANOCOBALAMIN
  2. FLONASE [Concomitant]
     Active Substance: FLUTICASONE PROPIONATE
  3. LISINOPRIL. [Concomitant]
     Active Substance: LISINOPRIL
  4. TELOTRISTAT ETHYL [Suspect]
     Active Substance: TELOTRISTAT ETHYL
     Indication: NEUROENDOCRINE TUMOUR
     Route: 048
     Dates: start: 20170516
  5. ONDANSETRON [Concomitant]
     Active Substance: ONDANSETRON
  6. TELOTRISTAT ETHYL [Suspect]
     Active Substance: TELOTRISTAT ETHYL
     Indication: CARCINOID SYNDROME
  7. CALCIUM [Concomitant]
     Active Substance: CALCIUM
  8. CLOPIDOGREL BISULFATE. [Concomitant]
     Active Substance: CLOPIDOGREL BISULFATE
  9. ELIQUIS [Concomitant]
     Active Substance: APIXABAN
  10. LOPERAMIDE [Concomitant]
     Active Substance: LOPERAMIDE
  11. COUMADIN [Concomitant]
     Active Substance: WARFARIN SODIUM
  12. OMEGA 3 [Concomitant]
     Active Substance: OMEGA-3 FATTY ACIDS
  13. METRONIDAZOL [Concomitant]
     Active Substance: METRONIDAZOLE
  14. TRIAMCINOLONE [Concomitant]
     Active Substance: TRIAMCINOLONE
  15. OMEPRAZOLE. [Concomitant]
     Active Substance: OMEPRAZOLE
  16. POTASSIUM CHLORIDE. [Concomitant]
     Active Substance: POTASSIUM CHLORIDE
  17. SPIRONOLACTONE. [Concomitant]
     Active Substance: SPIRONOLACTONE
  18. DIPHENOXYLATE [Concomitant]
     Active Substance: DIPHENOXYLATE
  19. CALCITRIOL. [Concomitant]
     Active Substance: CALCITRIOL
  20. FERROUS SULFATE. [Concomitant]
     Active Substance: FERROUS SULFATE
  21. DEXILANT [Concomitant]
     Active Substance: DEXLANSOPRAZOLE
  22. FUROSEMIDE. [Concomitant]
     Active Substance: FUROSEMIDE
  23. CLOTRIMAZOLE BETAMETHASONE [Concomitant]
  24. COLESTIPOL [Concomitant]
     Active Substance: COLESTIPOL
  25. LORATADINE. [Concomitant]
     Active Substance: LORATADINE
  26. PRAMIPEXOLE. [Concomitant]
     Active Substance: PRAMIPEXOLE
  27. MAGNESIUM [Concomitant]
     Active Substance: MAGNESIUM
  28. NITROGLYCERIN. [Concomitant]
     Active Substance: NITROGLYCERIN

REACTIONS (1)
  - Death [Fatal]

NARRATIVE: CASE EVENT DATE: 20170626
